FAERS Safety Report 7821981-X (Version None)
Quarter: 2011Q4

REPORT INFORMATION
  Report Type: 
  Country: None (occurrence: None)
  Receive Date: 20111018
  Receipt Date: 20110316
  Transmission Date: 20120403
  Serious: No
  Sender: FDA-Public Use
  Company Number: US-ASTRAZENECA-2010SE47163

PATIENT
  Sex: Male

DRUGS (1)
  1. SYMBICORT [Suspect]
     Indication: LUNG DISORDER
     Route: 055
     Dates: start: 20101005

REACTIONS (5)
  - CHEST DISCOMFORT [None]
  - AGITATION [None]
  - DYSPNOEA [None]
  - FEELING ABNORMAL [None]
  - VASOCONSTRICTION [None]
